FAERS Safety Report 24605883 (Version 3)
Quarter: 2024Q4

REPORT INFORMATION
  Report Type: Report from Study
  Country: US (occurrence: US)
  Receive Date: 20241111
  Receipt Date: 20241217
  Transmission Date: 20250114
  Serious: Yes (Other)
  Sender: ABBVIE
  Company Number: US-ABBVIE-5996591

PATIENT
  Sex: Male

DRUGS (1)
  1. HUMIRA [Suspect]
     Active Substance: ADALIMUMAB
     Indication: Dermatitis acneiform
     Dosage: FORM STRENGTH: 80 MG
     Route: 058
     Dates: start: 2022

REACTIONS (1)
  - Pancreatic failure [Unknown]
